FAERS Safety Report 26169131 (Version 1)
Quarter: 2025Q4

REPORT INFORMATION
  Report Type: Spontaneous
  Country: US (occurrence: US)
  Receive Date: 20251217
  Receipt Date: 20251217
  Transmission Date: 20260117
  Serious: No
  Sender: EPIC PHARM
  Company Number: US-EPICPHARMA-US-2025EPCSPO01256

PATIENT
  Age: 37 Year
  Sex: Male
  Weight: 285 kg

DRUGS (8)
  1. CHOLESTYRAMINE LIGHT [Suspect]
     Active Substance: CHOLESTYRAMINE
     Indication: Diarrhoea
     Dosage: POWDER FOR SUSPENSION
     Route: 048
     Dates: start: 20251124
  2. CHOLESTYRAMINE LIGHT [Suspect]
     Active Substance: CHOLESTYRAMINE
     Indication: Abdominal pain upper
  3. VENLAFAXINE [Concomitant]
     Active Substance: VENLAFAXINE HYDROCHLORIDE
     Indication: Product used for unknown indication
     Route: 065
  4. TRUVADA [Concomitant]
     Active Substance: EMTRICITABINE\TENOFOVIR DISOPROXIL FUMARATE
     Indication: Product used for unknown indication
     Dosage: 200/300 MG
     Route: 065
  5. RITALIN LA [Concomitant]
     Active Substance: METHYLPHENIDATE HYDROCHLORIDE
     Indication: Product used for unknown indication
     Route: 065
  6. AMLODIPINE [Concomitant]
     Active Substance: AMLODIPINE BESYLATE
     Indication: Product used for unknown indication
     Route: 065
  7. METAMUCIL [INULIN] [Concomitant]
     Indication: Product used for unknown indication
     Route: 065
  8. AZELASTINE [Concomitant]
     Active Substance: AZELASTINE
     Indication: Product used for unknown indication
     Dosage: ONE SPRAY EACH NOSTRIL
     Route: 065

REACTIONS (3)
  - Dysgeusia [Not Recovered/Not Resolved]
  - Product taste abnormal [Unknown]
  - Drug ineffective for unapproved indication [Unknown]

NARRATIVE: CASE EVENT DATE: 20251125
